FAERS Safety Report 4331694-7 (Version None)
Quarter: 2004Q2

REPORT INFORMATION
  Report Type: 
  Country: None (occurrence: None)
  Receive Date: 20040405
  Receipt Date: 20030225
  Transmission Date: 20050107
  Serious: No
  Sender: FDA-Public Use
  Company Number: US-GLAXOSMITHKLINE-A0398147A

PATIENT
  Age: 4 Year
  Sex: Male
  Weight: 21.8 kg

DRUGS (4)
  1. FLOVENT [Suspect]
     Indication: ASTHMA
     Dosage: 2PUFF TWICE PER DAY
     Route: 055
     Dates: start: 20020101, end: 20030217
  2. FLONASE [Concomitant]
     Dosage: 4SPR PER DAY
     Route: 045
     Dates: start: 20020821
  3. ZYRTEC [Concomitant]
     Dosage: 10ML VARIABLE DOSE
     Route: 048
  4. PROVENTIL [Concomitant]
     Indication: ASTHMA
     Dosage: 2PUFF AS REQUIRED
     Route: 055

REACTIONS (2)
  - ECZEMA [None]
  - HYPERSENSITIVITY [None]
